APPROVED DRUG PRODUCT: DICLOFENAC POTASSIUM
Active Ingredient: DICLOFENAC POTASSIUM
Strength: 50MG
Dosage Form/Route: TABLET;ORAL
Application: A075582 | Product #001
Applicant: CHARTWELL RX SCIENCES LLC
Approved: Feb 23, 2001 | RLD: No | RS: No | Type: DISCN